FAERS Safety Report 9432768 (Version 1)
Quarter: 2013Q3

REPORT INFORMATION
  Report Type: Spontaneous
  Country: IT (occurrence: IT)
  Receive Date: 20130731
  Receipt Date: 20130731
  Transmission Date: 20140515
  Serious: Yes (Other)
  Sender: FDA-Public Use
  Company Number: IT-BAYER-2013-089846

PATIENT
  Age: 64 Year
  Sex: Male

DRUGS (3)
  1. CIPROXIN 500 MG FILM-COATED TABLETS [Suspect]
     Indication: BRONCHITIS
     Dosage: 500 MG, ONCE
     Route: 048
     Dates: start: 20130625, end: 20130625
  2. LOSARTAN [Concomitant]
     Indication: HYPERTENSION
  3. AMOXI-CLAVULANICO [Concomitant]
     Dosage: UNK
     Dates: start: 20130619, end: 20130624

REACTIONS (3)
  - Erythema [Recovering/Resolving]
  - Joint lock [Recovering/Resolving]
  - Tendon disorder [Recovering/Resolving]
